FAERS Safety Report 9501186 (Version 1)
Quarter: 2013Q3

REPORT INFORMATION
  Report Type: Spontaneous
  Country: IT (occurrence: FR)
  Receive Date: 20130905
  Receipt Date: 20130905
  Transmission Date: 20140515
  Serious: Yes (Hospitalization)
  Sender: FDA-Public Use
  Company Number: FR-FRI-1000048324

PATIENT
  Age: 81 Year
  Sex: Female

DRUGS (8)
  1. NEBIVOLOL [Suspect]
     Indication: HYPERTENSION
     Dosage: 2.5 MG
     Route: 048
     Dates: end: 20130731
  2. EXFORGE [Concomitant]
     Indication: HYPERTENSION
     Dosage: 5 MG/160 MG
     Route: 048
     Dates: end: 20130731
  3. METFORMINE [Concomitant]
     Dosage: 2000 MG
     Route: 048
     Dates: end: 20130731
  4. DIAMICRON [Concomitant]
     Dosage: 30 MG
     Route: 048
     Dates: end: 20130731
  5. INEGY [Concomitant]
     Dosage: 10 MG/20 MG
     Route: 048
  6. ADENURIC [Concomitant]
     Dosage: 80 MG
     Route: 048
     Dates: end: 20130731
  7. MOPRAL [Concomitant]
     Dosage: 20 MG
     Route: 048
  8. ESIDREX [Concomitant]
     Dosage: 25 MG
     Route: 048
     Dates: end: 20130731

REACTIONS (2)
  - Bradycardia [Recovered/Resolved]
  - Atrioventricular block first degree [Recovered/Resolved]
